FAERS Safety Report 22592949 (Version 1)
Quarter: 2023Q2

REPORT INFORMATION
  Report Type: Spontaneous
  Country: US (occurrence: US)
  Receive Date: 20230613
  Receipt Date: 20230613
  Transmission Date: 20230721
  Serious: No
  Sender: FDA-Public Use
  Company Number: US-GLAXOSMITHKLINE-USCH2023027911

PATIENT
  Age: 38 Year
  Sex: Female

DRUGS (1)
  1. ALLI [Suspect]
     Active Substance: ORLISTAT
     Indication: Weight loss diet
     Dosage: 3 DF
     Dates: start: 2023, end: 202306

REACTIONS (3)
  - Chromaturia [Unknown]
  - Lipiduria [Unknown]
  - Pain [Unknown]

NARRATIVE: CASE EVENT DATE: 20230601
